FAERS Safety Report 25592180 (Version 2)
Quarter: 2025Q3

REPORT INFORMATION
  Report Type: Spontaneous
  Country: CA (occurrence: CA)
  Receive Date: 20250722
  Receipt Date: 20250806
  Transmission Date: 20251020
  Serious: Yes (Death)
  Sender: BAUSCH AND LOMB
  Company Number: CA-BAUSCH-BH-2025-014995

PATIENT

DRUGS (4)
  1. FLUOROURACIL [Suspect]
     Active Substance: FLUOROURACIL
     Indication: Pancreatic carcinoma
     Route: 065
  2. LEUCOVORIN [Suspect]
     Active Substance: LEUCOVORIN\LEUCOVORIN CALCIUM
     Indication: Pancreatic carcinoma
     Route: 065
  3. IRINOTECAN HYDROCHLORIDE [Suspect]
     Active Substance: IRINOTECAN HYDROCHLORIDE
     Indication: Pancreatic carcinoma
     Route: 065
  4. OXALIPLATIN [Suspect]
     Active Substance: OXALIPLATIN
     Indication: Pancreatic carcinoma
     Route: 065

REACTIONS (1)
  - Drug ineffective [Fatal]
